FAERS Safety Report 4378139-9 (Version None)
Quarter: 2004Q2

REPORT INFORMATION
  Report Type: 
  Country: None (occurrence: None)
  Receive Date: 20040616
  Receipt Date: 20001108
  Transmission Date: 20050107
  Serious: Yes (Hospitalization)
  Sender: FDA-Public Use
  Company Number: 10602928

PATIENT
  Age: 1 Day
  Sex: Male
  Weight: 4 kg

DRUGS (9)
  1. VIDEX [Suspect]
     Dosage: EXPOSURE DURING GESTATION.
     Route: 064
  2. VIDEX [Suspect]
     Route: 048
  3. RETROVIR [Suspect]
     Dosage: EXPOSURE DURING GESTATION + AT DELIVERY.
     Route: 064
     Dates: end: 19981211
  4. RETROVIR [Suspect]
     Route: 048
  5. BACTRIM [Concomitant]
     Route: 064
  6. MULTIVITAMIN [Concomitant]
     Route: 064
  7. IRON [Concomitant]
     Route: 064
  8. RIFAMPICIN [Concomitant]
  9. ISONIAZID [Concomitant]

REACTIONS (8)
  - ACQUIRED MACROCEPHALY [None]
  - BLOOD LACTIC ACID INCREASED [None]
  - DRUG EXPOSURE DURING PREGNANCY [None]
  - HYPOTONIA [None]
  - MACROCYTOSIS [None]
  - NEONATAL DISORDER [None]
  - NEUTROPENIA [None]
  - SPEECH DISORDER [None]
